FAERS Safety Report 17461425 (Version 1)
Quarter: 2020Q1

REPORT INFORMATION
  Report Type: Spontaneous
  Country: US (occurrence: US)
  Receive Date: 20200213
  Receipt Date: 20200213
  Transmission Date: 20200409
  Serious: Yes (Hospitalization)
  Sender: FDA-Public Use
  Company Number: None

PATIENT
  Age: 42 Year
  Sex: Female
  Weight: 82.7 kg

DRUGS (1)
  1. CISPLATIN. [Suspect]
     Active Substance: CISPLATIN
     Dates: end: 20200120

REACTIONS (5)
  - Pulmonary infarction [None]
  - Dilatation ventricular [None]
  - Ejection fraction decreased [None]
  - Embolism [None]
  - Sinus tachycardia [None]

NARRATIVE: CASE EVENT DATE: 20200203
